FAERS Safety Report 7878785-1 (Version None)
Quarter: 2011Q4

REPORT INFORMATION
  Report Type: 
  Country: None (occurrence: None)
  Receive Date: 20111021
  Receipt Date: 20110819
  Transmission Date: 20120403
  Serious: No
  Sender: FDA-Public Use
  Company Number: US-006126

PATIENT
  Sex: Male
  Weight: 55.7924 kg

DRUGS (10)
  1. VITAMIN B COMPLEX /00059201/ [Concomitant]
  2. AVODART [Concomitant]
  3. CIALIS [Concomitant]
  4. C-VITAMIN [Concomitant]
  5. LISINOPRIL [Concomitant]
  6. VITAMIN D [Concomitant]
  7. FLOMAX [Concomitant]
  8. DEGARELIX 80 MG [Suspect]
     Indication: PROSTATE CANCER
     Dosage: (SUBCUTANEOUS)
     Route: 058
     Dates: start: 20110720
  9. DEGARELIX 80 MG [Suspect]
     Indication: PROSTATE CANCER
     Dosage: (SUBCUTANEOUS)
     Route: 058
     Dates: end: 20110816
  10. LIPITOR [Concomitant]

REACTIONS (3)
  - MEDICATION ERROR [None]
  - DEVICE LEAKAGE [None]
  - NO ADVERSE EVENT [None]
